FAERS Safety Report 15560707 (Version 2)
Quarter: 2019Q1

REPORT INFORMATION
  Report Type: Spontaneous
  Country: US (occurrence: US)
  Receive Date: 20181029
  Receipt Date: 20190121
  Transmission Date: 20190417
  Serious: Yes (Other)
  Sender: FDA-Public Use
  Company Number: US-PFIZER INC-2018436338

PATIENT
  Age: 43 Year
  Sex: Female

DRUGS (6)
  1. ELETRIPTAN HBR [Suspect]
     Active Substance: ELETRIPTAN HYDROBROMIDE
     Indication: DISABILITY
  2. GABAPENTIN. [Concomitant]
     Active Substance: GABAPENTIN
     Indication: DISABILITY
  3. BOTOX [Concomitant]
     Active Substance: ONABOTULINUMTOXINA
     Indication: HEADACHE
     Dosage: UNK
  4. BOTOX [Concomitant]
     Active Substance: ONABOTULINUMTOXINA
     Indication: DISABILITY
  5. GABAPENTIN. [Concomitant]
     Active Substance: GABAPENTIN
     Indication: HEADACHE
     Dosage: UNK
  6. ELETRIPTAN HBR [Suspect]
     Active Substance: ELETRIPTAN HYDROBROMIDE
     Indication: HEADACHE
     Dosage: UNK

REACTIONS (1)
  - Drug abuse [Unknown]
